FAERS Safety Report 14776616 (Version 2)
Quarter: 2018Q2

REPORT INFORMATION
  Report Type: Spontaneous
  Country: DE (occurrence: DE)
  Receive Date: 20180418
  Receipt Date: 20180419
  Transmission Date: 20180711
  Serious: Yes (Hospitalization)
  Sender: FDA-Public Use
  Company Number: DE-CONCORDIA PHARMACEUTICALS INC.-E2B_00011108

PATIENT
  Age: 82 Year
  Sex: Female

DRUGS (31)
  1. PREDNISOLONE. [Suspect]
     Active Substance: PREDNISOLONE
     Dosage: 5 MG, UNK
     Route: 065
  2. SPASMEX (TROSPIUM CHLORIDE) [Suspect]
     Active Substance: TROSPIUM CHLORIDE
     Dosage: 45 MG, DAILY
     Dates: end: 20170124
  3. CORDAREX [Concomitant]
     Active Substance: AMIODARONE
     Dosage: UNK
  4. LIXIANA [Suspect]
     Active Substance: EDOXABAN TOSYLATE
     Indication: ATRIAL FIBRILLATION
     Dosage: 30 MG, DAILY
     Route: 065
     Dates: start: 20160930
  5. SPASMEX (TROSPIUM CHLORIDE) [Suspect]
     Active Substance: TROSPIUM CHLORIDE
     Dosage: 15 MG, DAILY
     Route: 065
  6. METOPROLOL SUCCINATE. [Suspect]
     Active Substance: METOPROLOL SUCCINATE
     Dosage: 95 MG, UNK
     Dates: start: 20170124
  7. TORASEMID [Suspect]
     Active Substance: TORSEMIDE
     Dosage: 5 MG, UNK
  8. ENOXAPARIN [Concomitant]
     Active Substance: ENOXAPARIN
     Dosage: UNK
  9. RIOPAN (MAGALDRAT) [Concomitant]
     Active Substance: MAGALDRATE
     Dosage: UNK
  10. PANTOPRAZOL [Suspect]
     Active Substance: PANTOPRAZOLE SODIUM
     Dosage: 20 MG, DAILY
     Route: 065
  11. TOREM [Concomitant]
     Active Substance: TORSEMIDE
     Dosage: UNK
  12. FOLIC ACID. [Concomitant]
     Active Substance: FOLIC ACID
     Dosage: UNK
     Dates: start: 20170124
  13. HUMIRA [Suspect]
     Active Substance: ADALIMUMAB
     Dosage: 1 (UNITS: UNKNOWN), EVERY OTHER WEEK
     Dates: start: 20161115
  14. DEKRISTOL [Suspect]
     Active Substance: CHOLECALCIFEROL
     Dosage: 20000 IU, WEEKLY
     Route: 065
  15. SIMVASTATIN. [Suspect]
     Active Substance: SIMVASTATIN
     Dosage: 40 MG, UNK
     Route: 065
  16. AMIODARONE HYDROCHLORIDE. [Suspect]
     Active Substance: AMIODARONE HYDROCHLORIDE
     Dosage: 200 MG, UNK
  17. BIFITERAL [Suspect]
     Active Substance: LACTULOSE
     Dosage: UNK
     Route: 065
     Dates: start: 20170124
  18. CLOPIDOGREL [Suspect]
     Active Substance: CLOPIDOGREL BISULFATE
     Dosage: UNK
     Route: 065
     Dates: end: 20170124
  19. MOVICOL [Suspect]
     Active Substance: POLYETHYLENE GLYCOL 3350\POTASSIUM CHLORIDE\SODIUM BICARBONATE\SODIUM CHLORIDE
     Dosage: UNK
     Route: 065
     Dates: start: 20170124
  20. SPIRO COMP [Suspect]
     Active Substance: FUROSEMIDE\SPIRONOLACTONE
     Dosage: UNK
     Route: 065
     Dates: start: 201610
  21. VALSARTAN. [Suspect]
     Active Substance: VALSARTAN
     Dosage: 160 MG, UNK
     Route: 065
  22. SODIUM CHLORIDE. [Concomitant]
     Active Substance: SODIUM CHLORIDE
     Dosage: UNK
  23. FRAXIPARIN [Concomitant]
     Active Substance: NADROPARIN CALCIUM
     Dosage: UNK
  24. HUMIRA [Suspect]
     Active Substance: ADALIMUMAB
     Indication: RHEUMATOID ARTHRITIS
     Dosage: 1 (UNITS: UNKNOWN), EVERY OTHER WEEK
     Route: 058
     Dates: start: 20120411, end: 20160927
  25. FENTANYL. [Suspect]
     Active Substance: FENTANYL
     Dosage: 75 UG, EVERY HOUR
     Route: 062
  26. LOSARTAN COMP [Suspect]
     Active Substance: HYDROCHLOROTHIAZIDE\LOSARTAN POTASSIUM
     Dosage: 1 (UNITS: UNKNOWN), DAILY
     Route: 065
     Dates: start: 2016
  27. XIPAMIDE [Suspect]
     Active Substance: XIPAMIDE
     Dosage: 20 MG, UNK
     Route: 065
     Dates: end: 20170124
  28. ASPIRIN. [Suspect]
     Active Substance: ASPIRIN
     Dosage: 100 MG, UNK
     Route: 065
  29. VOLTAREN RESINAT [Suspect]
     Active Substance: DICLOFENAC
     Dosage: 2 (UNITS: UNKNOWN), DAILY
     Route: 065
     Dates: start: 201610
  30. BISOHEXAL [Suspect]
     Active Substance: BISOPROLOL FUMARATE
     Dosage: 5 MG, UNK
     Route: 065
     Dates: start: 2016
  31. LEVOSIMENDAN [Concomitant]
     Active Substance: LEVOSIMENDAN
     Dosage: UNK
     Dates: start: 201611, end: 201611

REACTIONS (54)
  - Joint dislocation [Unknown]
  - Wound dehiscence [Recovered/Resolved]
  - Coronary artery disease [Unknown]
  - General physical health deterioration [Unknown]
  - Pancreatic steatosis [Unknown]
  - Left ventricular dysfunction [Recovered/Resolved]
  - Aortic valve stenosis [Unknown]
  - Joint dislocation [Recovered/Resolved]
  - Osteopenia [Unknown]
  - Haematuria [Unknown]
  - Gastrointestinal haemorrhage [Recovered/Resolved]
  - Myelodysplastic syndrome [Unknown]
  - Anaemia [Recovered/Resolved]
  - Decreased appetite [Unknown]
  - Impaired healing [Unknown]
  - Urinary tract infection [Unknown]
  - Escherichia infection [Unknown]
  - Mitral valve incompetence [Unknown]
  - Fall [Unknown]
  - Anuria [Unknown]
  - Myocardial infarction [Recovered/Resolved]
  - Faecaloma [Unknown]
  - Acute kidney injury [Unknown]
  - Aortic arteriosclerosis [Unknown]
  - Hepatic cyst [Unknown]
  - Tachyarrhythmia [Unknown]
  - Gait disturbance [Unknown]
  - Lymphatic fistula [Recovered/Resolved]
  - Hyponatraemia [Unknown]
  - Dyspnoea [Unknown]
  - Tricuspid valve incompetence [Unknown]
  - Abdominal discomfort [Unknown]
  - Cardiovascular disorder [Unknown]
  - Pulmonary hypertension [Unknown]
  - Eructation [Unknown]
  - Dyspepsia [Unknown]
  - Haemarthrosis [Unknown]
  - Diverticulum intestinal [Unknown]
  - Femoral hernia incarcerated [Recovered/Resolved]
  - Arthralgia [Unknown]
  - Peripheral swelling [Unknown]
  - Arterial haemorrhage [Recovered/Resolved]
  - Hyperkalaemia [Unknown]
  - Groin pain [Unknown]
  - Vomiting [Unknown]
  - Aplastic anaemia [Unknown]
  - Cardiogenic shock [Unknown]
  - Urinary retention [Unknown]
  - Hiatus hernia [Unknown]
  - Oedema peripheral [Unknown]
  - Postoperative wound infection [Recovered/Resolved]
  - Seroma [Unknown]
  - Inflammatory marker increased [Recovered/Resolved]
  - Wound infection pseudomonas [Unknown]

NARRATIVE: CASE EVENT DATE: 201603
